FAERS Safety Report 9704928 (Version 2)
Quarter: 2013Q4

REPORT INFORMATION
  Report Type: Report from Study
  Country: FR (occurrence: FR)
  Receive Date: 20131122
  Receipt Date: 20131216
  Transmission Date: 20140711
  Serious: Yes (Hospitalization)
  Sender: FDA-Public Use
  Company Number: FR-UCBSA-103740

PATIENT
  Age: 45 Year
  Sex: Female

DRUGS (5)
  1. LACOSAMIDE [Suspect]
     Indication: EPILEPSY
     Route: 048
     Dates: start: 20130911, end: 20131119
  2. ATORVASTATIN [Concomitant]
  3. KARDEGIC [Concomitant]
  4. ESOMEPRAZOLE [Concomitant]
  5. KEPPRA [Concomitant]

REACTIONS (1)
  - Convulsion [Unknown]
